FAERS Safety Report 5073465-2 (Version None)
Quarter: 2006Q3

REPORT INFORMATION
  Report Type: 
  Country: None (occurrence: None)
  Receive Date: 20060803
  Receipt Date: 20060720
  Transmission Date: 20061208
  Serious: Yes (Death)
  Sender: FDA-Public Use
  Company Number: ABUTO-06-0373

PATIENT
  Age: 68 Year
  Sex: Female

DRUGS (5)
  1. ABRAXANE [Suspect]
     Indication: BREAST CANCER METASTATIC
     Dosage: 478 MG, INTRAVENOUS
     Route: 042
     Dates: start: 20060615, end: 20060706
  2. AVASTIN [Suspect]
     Indication: BREAST CANCER METASTATIC
     Dosage: 1254 MG (15MG/KG), INTRAVENOUS
     Route: 042
     Dates: start: 20060615, end: 20060706
  3. LANOXIN [Concomitant]
  4. HYDROCHLOROTHIAZIDE [Concomitant]
  5. BENADRYL [Concomitant]

REACTIONS (3)
  - ANOXIA [None]
  - CARDIO-RESPIRATORY ARREST [None]
  - LOSS OF CONSCIOUSNESS [None]
